FAERS Safety Report 7247572-X (Version None)
Quarter: 2011Q1

REPORT INFORMATION
  Report Type: 
  Country: None (occurrence: None)
  Receive Date: 20110127
  Receipt Date: 20110117
  Transmission Date: 20110831
  Serious: Yes (Other)
  Sender: FDA-Public Use
  Company Number: PHHY2011PL04434

PATIENT
  Sex: Male

DRUGS (2)
  1. TEGRETOL-XR [Suspect]
     Indication: PAIN
  2. TEGRETOL-XR [Suspect]
     Indication: NEURALGIA
     Dosage: 200

REACTIONS (2)
  - DEMENTIA [None]
  - BALANCE DISORDER [None]
